FAERS Safety Report 7733551-2 (Version None)
Quarter: 2011Q3

REPORT INFORMATION
  Report Type: 
  Country: None (occurrence: None)
  Receive Date: 20110907
  Receipt Date: 20110825
  Transmission Date: 20111222
  Serious: Yes (Other)
  Sender: FDA-Public Use
  Company Number: GB-ELI_LILLY_AND_COMPANY-GB201107000439

PATIENT
  Age: 14 Year
  Sex: Male

DRUGS (4)
  1. STRATTERA [Suspect]
     Indication: ATTENTION DEFICIT/HYPERACTIVITY DISORDER
     Dosage: 20 MG, QD
     Route: 048
     Dates: start: 20110501
  2. STRATTERA [Suspect]
     Dosage: 40 MG, QD
     Route: 048
  3. METHYLPHENIDATE HYDROCHLORIDE [Concomitant]
     Dosage: 20 MG, EACH MORNING
  4. METHYLPHENIDATE HYDROCHLORIDE [Concomitant]
     Dosage: 40 MG, EACH MORNING

REACTIONS (4)
  - HEART RATE INCREASED [None]
  - SYNCOPE [None]
  - BLOOD PRESSURE INCREASED [None]
  - PALPITATIONS [None]
